FAERS Safety Report 22963136 (Version 2)
Quarter: 2025Q4

REPORT INFORMATION
  Report Type: Report from Study
  Country: CA (occurrence: CA)
  Receive Date: 20230920
  Receipt Date: 20251029
  Transmission Date: 20260117
  Serious: Yes (Hospitalization, Other)
  Sender: SANDOZ
  Company Number: CA-SANDOZ-SDZ2023CA029203

PATIENT
  Age: 76 Year
  Sex: Female

DRUGS (1)
  1. HYRIMOZ [Suspect]
     Active Substance: ADALIMUMAB-ADAZ
     Indication: Ankylosing spondylitis
     Dosage: 40 MG, Q2W
     Route: 058
     Dates: start: 20220519

REACTIONS (2)
  - Hospitalisation [Recovering/Resolving]
  - Ankylosing spondylitis [Unknown]

NARRATIVE: CASE EVENT DATE: 20230915
